FAERS Safety Report 7063426-6 (Version None)
Quarter: 2010Q4

REPORT INFORMATION
  Report Type: 
  Country: None (occurrence: None)
  Receive Date: 20101026
  Receipt Date: 20091109
  Transmission Date: 20110411
  Serious: No
  Sender: FDA-Public Use
  Company Number: US-ABBOTT-09P-163-0607920-00

PATIENT
  Sex: Female
  Weight: 72.64 kg

DRUGS (2)
  1. LUPRON DEPOT [Suspect]
     Indication: UTERINE HAEMORRHAGE
     Dates: start: 20090924, end: 20090924
  2. LUPRON DEPOT [Suspect]
     Indication: UTERINE POLYP
     Dates: start: 20091029

REACTIONS (1)
  - VAGINAL HAEMORRHAGE [None]
